FAERS Safety Report 7894139-6 (Version None)
Quarter: 2011Q4

REPORT INFORMATION
  Report Type: 
  Country: None (occurrence: None)
  Receive Date: 20111104
  Receipt Date: 20111027
  Transmission Date: 20120403
  Serious: Yes (Other)
  Sender: FDA-Public Use
  Company Number: CHPA2011US15076

PATIENT
  Age: 95 Year
  Sex: Female

DRUGS (17)
  1. PERDIEM FIBER [Suspect]
     Indication: CONSTIPATION
     Dosage: UNK, UNK
     Route: 048
  2. PERDIEM OVERNIGHT RELIEF PILLS [Suspect]
     Indication: CONSTIPATION
     Dosage: 2 TABLETS,  A DAY
     Route: 048
  3. LOSARTAN POTASSIUM [Concomitant]
     Dosage: UNK, UNK
  4. ASPIRIN [Concomitant]
     Dosage: UNK, UNK
  5. FUROSEMIDE [Concomitant]
     Dosage: UNK, UNK
  6. GLUCOSAMINE [Concomitant]
     Dosage: UNK, UNK
  7. LEXAPRO [Concomitant]
     Dosage: UNK, UNK
  8. DRUG THERAPY NOS [Concomitant]
     Dosage: UNK, UNK
  9. OMEPRAZOLE [Concomitant]
     Dosage: UNK, UNK
  10. DRUG THERAPY NOS [Concomitant]
     Dosage: UNK, UNK
  11. PERDIEM OVERNIGHT RELIEF PILLS [Suspect]
     Dosage: 3 TABLETS, A DAY
     Route: 048
  12. NITRGLYCERIN TRANSDERMAL SYSTEM [Concomitant]
     Dosage: UNK, UNK
  13. PRESERVISION /USA/ [Concomitant]
     Indication: MACULAR DEGENERATION
     Dosage: UNK, UNK
  14. KLOR-CON [Concomitant]
     Indication: ELECTROLYTE SUBSTITUTION THERAPY
     Dosage: UNK, UNK
  15. TRAMADOL HCL [Concomitant]
     Dosage: UNK, UNK
  16. CENTRUM SILVER [Concomitant]
     Dosage: UNK, UNK
  17. SENNA [Concomitant]
     Indication: CONSTIPATION
     Dosage: 1 PILL, UNK

REACTIONS (2)
  - DRUG DEPENDENCE [None]
  - HERNIA [None]
